FAERS Safety Report 20073102 (Version 2)
Quarter: 2021Q4

REPORT INFORMATION
  Report Type: Spontaneous
  Country: AR (occurrence: AR)
  Receive Date: 20211116
  Receipt Date: 20211125
  Transmission Date: 20220303
  Serious: Yes (Other)
  Sender: FDA-Public Use
  Company Number: AR-GLAXOSMITHKLINE-AR2021AMR231853

PATIENT
  Sex: Female

DRUGS (3)
  1. BELIMUMAB [Suspect]
     Active Substance: BELIMUMAB
     Indication: Erythema multiforme
     Dosage: 200 MG, WE,
     Route: 058
     Dates: start: 2021
  2. BELIMUMAB [Suspect]
     Active Substance: BELIMUMAB
     Indication: Subacute cutaneous lupus erythematosus
     Dosage: UNK
     Dates: start: 20211117
  3. HYDROXYCHLOROQUINE [Concomitant]
     Active Substance: HYDROXYCHLOROQUINE
     Indication: Product used for unknown indication
     Dosage: 400 MG, QD

REACTIONS (6)
  - Partial seizures [Recovered/Resolved]
  - Petit mal epilepsy [Recovered/Resolved]
  - Loss of consciousness [Recovered/Resolved]
  - Disorientation [Unknown]
  - Somnolence [Unknown]
  - Product use in unapproved indication [Unknown]

NARRATIVE: CASE EVENT DATE: 20210101
